FAERS Safety Report 12100811 (Version 1)
Quarter: 2016Q1

REPORT INFORMATION
  Report Type: Spontaneous
  Country: US (occurrence: US)
  Receive Date: 20160222
  Receipt Date: 20160222
  Transmission Date: 20160526
  Serious: Yes (Other)
  Sender: FDA-Public Use
  Company Number: US-PROCTER_AND_GAMBLE-GS16018709

PATIENT

DRUGS (1)
  1. VICKS NOS [Suspect]
     Active Substance: MENTHOL OR OXYMETAZOLINE HYDROCHLORIDE OR PHENYLEPHRINE HYDROCHLORIDE
     Dosage: UNK
     Route: 048
     Dates: start: 201601

REACTIONS (2)
  - Drug dependence [Unknown]
  - Insomnia [Unknown]
